FAERS Safety Report 4301227-X (Version None)
Quarter: 2004Q1

REPORT INFORMATION
  Report Type: 
  Country: None (occurrence: None)
  Receive Date: 20040218
  Receipt Date: 20031022
  Transmission Date: 20041129
  Serious: No
  Sender: FDA-Public Use
  Company Number: 2003-10-2871

PATIENT
  Age: 71 Year
  Sex: Female
  Weight: 83.0083 kg

DRUGS (8)
  1. PEG-INTRON [Suspect]
     Indication: HEPATITIS C
     Dosage: 150-120*MU/WK
     Route: 058
     Dates: start: 20030303
  2. REBETOL [Suspect]
     Indication: HEPATITIS C
     Dosage: 800*MG QD
     Route: 048
     Dates: start: 20030303
  3. ATENOLOL [Concomitant]
  4. LOTREL [Concomitant]
  5. HYDROCHLOROTHIAZIDE [Concomitant]
  6. ZESTRIL [Concomitant]
  7. PROTONIX [Concomitant]
  8. CELEBREX [Concomitant]

REACTIONS (4)
  - ANAEMIA [None]
  - FEELING ABNORMAL [None]
  - MEMORY IMPAIRMENT [None]
  - NEUTROPENIA [None]
